FAERS Safety Report 13172011 (Version 7)
Quarter: 2020Q2

REPORT INFORMATION
  Report Type: Spontaneous
  Country: US (occurrence: US)
  Receive Date: 20170201
  Receipt Date: 20200515
  Transmission Date: 20200713
  Serious: Yes (Other)
  Sender: FDA-Public Use
  Company Number: US-PFIZER INC-2017041033

PATIENT
  Age: 12 Year
  Sex: Male
  Weight: 24 kg

DRUGS (25)
  1. METADATE ER [Concomitant]
     Active Substance: METHYLPHENIDATE HYDROCHLORIDE
     Dosage: 10 MG, 1X/DAY
     Route: 048
  2. ALBUTEROL SULFATE. [Concomitant]
     Active Substance: ALBUTEROL SULFATE
     Indication: ASTHMA
     Dosage: 1 IU, AS NEEDED (BID AND EVERY 4-6 HOURS)
     Route: 045
     Dates: start: 20180320
  3. OSCAL 500-D [Concomitant]
     Dosage: 1 DF, DAILY (CALCIUM-500 MG, COLECALCIFEROL-200 MG)
     Route: 048
     Dates: start: 20160314
  4. RITALIN [Concomitant]
     Active Substance: METHYLPHENIDATE HYDROCHLORIDE
     Dosage: UNK
     Dates: start: 2011
  5. FOCALIN XR [Concomitant]
     Active Substance: DEXMETHYLPHENIDATE HYDROCHLORIDE
     Dosage: 10 MG, UNK
     Route: 048
     Dates: start: 2015
  6. PROBIOTIC [Concomitant]
     Active Substance: PROBIOTICS NOS
     Dosage: UNK
  7. GENOTROPIN MQ [Suspect]
     Active Substance: SOMATROPIN
     Indication: GROWTH FAILURE
     Dosage: 0.6 MG, DAILY
     Route: 058
     Dates: start: 20160909, end: 20170129
  8. GENOTROPIN MQ [Suspect]
     Active Substance: SOMATROPIN
     Indication: GROWTH HORMONE DEFICIENCY
     Dosage: 0.8 MG, UNK
  9. GENOTROPIN MQ [Suspect]
     Active Substance: SOMATROPIN
     Dosage: 1.4 MG, DAILY
     Route: 058
  10. MELATONIN [Concomitant]
     Active Substance: MELATONIN
     Dosage: 3 MG, UNK
     Route: 048
  11. PREDNISONE. [Concomitant]
     Active Substance: PREDNISONE
     Dosage: 20 MG, 1X/DAY
     Route: 048
  12. AZATHIOPRINE. [Concomitant]
     Active Substance: AZATHIOPRINE
     Dosage: 25 MG, DAILY (1/2 TABLET)
     Route: 048
     Dates: start: 20150602
  13. MIRALAX [Concomitant]
     Active Substance: POLYETHYLENE GLYCOL 3350
     Dosage: UNK
     Dates: start: 2015
  14. CALCIUM [Concomitant]
     Active Substance: CALCIUM
     Dosage: 1 DF, 1X/DAY (500-100 MG-UNIT)
     Route: 048
     Dates: start: 20171211
  15. RITALIN [Concomitant]
     Active Substance: METHYLPHENIDATE HYDROCHLORIDE
     Dosage: 25 MG, DAILY
  16. FLUTICASONE PROPIONATE. [Concomitant]
     Active Substance: FLUTICASONE PROPIONATE
     Dosage: 100 UG, 1X/DAY (50 MCG/ACT NASAL SUSPENSION, USE 1 SPRAY IN EACH NOSTRIL)
     Route: 045
     Dates: start: 20170315
  17. REFRESH OPTIVE [Concomitant]
     Active Substance: CARBOXYMETHYLCELLULOSE SODIUM\GLYCERIN
     Dosage: UNK
     Dates: start: 2015
  18. CETIRIZINE HCL [Concomitant]
     Active Substance: CETIRIZINE HYDROCHLORIDE
     Indication: HYPERSENSITIVITY
     Dosage: 10 MG, DAILY
     Route: 048
  19. CALCIUM [Concomitant]
     Active Substance: CALCIUM
     Dosage: UNK
     Dates: start: 2018
  20. CALCIUM ANTACID [Concomitant]
     Active Substance: CALCIUM CARBONATE
     Dosage: 500 MG, UNK
     Route: 048
     Dates: start: 20171211
  21. GENOTROPIN MQ [Suspect]
     Active Substance: SOMATROPIN
     Indication: SHORT STATURE
     Dosage: 0.6 MG, 1X/DAY
     Route: 058
     Dates: start: 201607
  22. ALBUTEROL SULFATE. [Concomitant]
     Active Substance: ALBUTEROL SULFATE
     Indication: WHEEZING
  23. DULERA [Concomitant]
     Active Substance: FORMOTEROL FUMARATE DIHYDRATE\MOMETASONE FUROATE
     Indication: CHRONIC OBSTRUCTIVE PULMONARY DISEASE
     Dosage: 2 DF, 2X/DAY (INHALE TWO PUFFS TWO TIMES A DAY)
     Route: 055
     Dates: start: 20150729
  24. RITALIN [Concomitant]
     Active Substance: METHYLPHENIDATE HYDROCHLORIDE
     Dosage: 15 MG, 2X/DAY (15 MG IN THE AM 15 MG AT 1 PM)
  25. VITAMIN D [Concomitant]
     Active Substance: VITAMIN D NOS
     Dosage: 50000 IU, WEEKLY
     Route: 048
     Dates: start: 20171211

REACTIONS (13)
  - Back pain [Unknown]
  - Fatigue [Recovering/Resolving]
  - Myalgia [Recovered/Resolved]
  - Neck pain [Recovered/Resolved]
  - Product dose omission [Unknown]
  - Pain in extremity [Recovered/Resolved]
  - Gait disturbance [Recovered/Resolved]
  - Pain [Recovered/Resolved]
  - Arthralgia [Recovering/Resolving]
  - Nausea [Recovering/Resolving]
  - Movement disorder [Recovered/Resolved]
  - Rash papular [Recovered/Resolved]
  - Thirst [Recovering/Resolving]

NARRATIVE: CASE EVENT DATE: 2017
